FAERS Safety Report 12548003 (Version 1)
Quarter: 2016Q3

REPORT INFORMATION
  Report Type: Spontaneous
  Country: US (occurrence: None)
  Receive Date: 20160711
  Receipt Date: 20160711
  Transmission Date: 20161109
  Serious: Yes (Other)
  Sender: FDA-Public Use
  Company Number: None

PATIENT
  Age: 56 Year
  Sex: Male
  Weight: 56.7 kg

DRUGS (8)
  1. IRON [Concomitant]
     Active Substance: IRON
  2. CALCIUM [Concomitant]
     Active Substance: CALCIUM
  3. ONE A DAY VITAMIN FOR MEN [Concomitant]
  4. VITAMIN B12 [Concomitant]
     Active Substance: CYANOCOBALAMIN
  5. VITAMIN D [Concomitant]
     Active Substance: CHOLECALCIFEROL
  6. ZINC [Concomitant]
     Active Substance: ZINC\ZINC CHLORIDE
  7. LOMOTIL [Concomitant]
     Active Substance: ATROPINE SULFATE\DIPHENOXYLATE HYDROCHLORIDE
  8. ENTYVIO [Suspect]
     Active Substance: VEDOLIZUMAB
     Indication: CROHN^S DISEASE
     Dosage: EVERY 8 WEEKS INFU INTO A VEIN
     Route: 042

REACTIONS (3)
  - Arthralgia [None]
  - Musculoskeletal stiffness [None]
  - Back pain [None]

NARRATIVE: CASE EVENT DATE: 20160530
